FAERS Safety Report 4989662-8 (Version None)
Quarter: 2006Q2

REPORT INFORMATION
  Report Type: 
  Country: None (occurrence: None)
  Receive Date: 20060426
  Receipt Date: 20060410
  Transmission Date: 20061013
  Serious: Yes (Hospitalization, Other)
  Sender: FDA-Public Use
  Company Number: US200604002319

PATIENT
  Age: 62 Year
  Sex: Female

DRUGS (2)
  1. FORTEO [Suspect]
     Indication: OSTEOPOROSIS
     Dates: start: 20050101, end: 20051001
  2. FORTEO [Concomitant]

REACTIONS (6)
  - BACK PAIN [None]
  - LOSS OF CONSCIOUSNESS [None]
  - MYOCARDIAL INFARCTION [None]
  - PACEMAKER COMPLICATION [None]
  - PHARMACEUTICAL PRODUCT COMPLAINT [None]
  - SINUS ARRHYTHMIA [None]
